FAERS Safety Report 5893044-4 (Version None)
Quarter: 2008Q3

REPORT INFORMATION
  Report Type: 
  Country: None (occurrence: None)
  Receive Date: 20080923
  Receipt Date: 20080115
  Transmission Date: 20090109
  Serious: No
  Sender: FDA-Public Use
  Company Number: US-ASTRAZENECA-2006UW27667

PATIENT
  Age: 595 Month
  Sex: Female
  Weight: 90.9 kg

DRUGS (4)
  1. SEROQUEL [Suspect]
     Indication: NERVOUSNESS
     Dosage: 25 MG TO 900 MG
     Route: 048
     Dates: start: 20030101
  2. EFFEXOR [Concomitant]
     Dates: start: 20040101
  3. LEXAPRO [Concomitant]
     Dates: start: 20040101
  4. ZYPREXA [Concomitant]
     Dates: start: 20030101

REACTIONS (2)
  - DIABETES MELLITUS [None]
  - SPINAL OSTEOARTHRITIS [None]
